FAERS Safety Report 6534728-4 (Version None)
Quarter: 2010Q1

REPORT INFORMATION
  Report Type: 
  Country: None (occurrence: None)
  Receive Date: 20100112
  Receipt Date: 20100108
  Transmission Date: 20100710
  Serious: Yes (Other)
  Sender: FDA-Public Use
  Company Number: CH-ROCHE-678457

PATIENT
  Sex: Male

DRUGS (2)
  1. AVASTIN [Suspect]
     Indication: BRAIN STEM GLIOMA
     Route: 042
  2. TEMODAL [Concomitant]
     Indication: BRAIN STEM GLIOMA

REACTIONS (1)
  - MALIGNANT NEOPLASM PROGRESSION [None]
